FAERS Safety Report 8304388-0 (Version None)
Quarter: 2012Q2

REPORT INFORMATION
  Report Type: 
  Country: None (occurrence: None)
  Receive Date: 20120423
  Receipt Date: 20120410
  Transmission Date: 20120825
  Serious: Yes (Life-Threatening, Other)
  Sender: FDA-Public Use
  Company Number: RU-ELI_LILLY_AND_COMPANY-RU201204003470

PATIENT
  Age: 57 Year
  Sex: Female

DRUGS (2)
  1. LITHIUM CARBONATE [Concomitant]
     Dosage: 900 MG, QD
     Dates: start: 20111201, end: 20120101
  2. ZYPREXA [Suspect]
     Indication: HYPOMANIA
     Dosage: 10 MG, BID
     Route: 030
     Dates: start: 20111201, end: 20120101

REACTIONS (4)
  - NEUROLEPTIC MALIGNANT SYNDROME [None]
  - DRUG INTERACTION [None]
  - SEPTIC SHOCK [None]
  - PNEUMONIA [None]
